FAERS Safety Report 7158477-7 (Version None)
Quarter: 2010Q4

REPORT INFORMATION
  Report Type: 
  Country: None (occurrence: None)
  Receive Date: 20101214
  Receipt Date: 20100902
  Transmission Date: 20110411
  Serious: No
  Sender: FDA-Public Use
  Company Number: US-ASTRAZENECA-2010SE24908

PATIENT
  Age: 77 Year
  Sex: Female
  Weight: 64.4 kg

DRUGS (12)
  1. CRESTOR [Suspect]
     Indication: HYPERLIPIDAEMIA
     Route: 048
     Dates: start: 20100201
  2. CRESTOR [Suspect]
     Route: 048
     Dates: start: 20100201
  3. ASPIRIN [Concomitant]
  4. CALCIUM VITAMIN D [Concomitant]
  5. MAGNESIUM [Concomitant]
  6. PROTONIX [Concomitant]
  7. MULTI-VITAMIN [Concomitant]
  8. METOPROLOL [Concomitant]
  9. DYAZIDE [Concomitant]
  10. M.V.I. [Concomitant]
  11. OMEPRAZOLE [Concomitant]
  12. COLEUS [Concomitant]

REACTIONS (1)
  - CHEST DISCOMFORT [None]
